FAERS Safety Report 6349817-7 (Version None)
Quarter: 2009Q3

REPORT INFORMATION
  Report Type: 
  Country: None (occurrence: None)
  Receive Date: 20090911
  Receipt Date: 20090903
  Transmission Date: 20100115
  Serious: Yes (Hospitalization)
  Sender: FDA-Public Use
  Company Number: FR-MERCK-0909FRA00010

PATIENT
  Age: 75 Year
  Sex: Male

DRUGS (2)
  1. MECTIZAN [Suspect]
     Indication: ACARODERMATITIS
     Route: 048
     Dates: start: 20090627
  2. BENZYL BENZOATE [Concomitant]
     Indication: ACARODERMATITIS
     Route: 065
     Dates: start: 20090627

REACTIONS (3)
  - ACARODERMATITIS [None]
  - CONDITION AGGRAVATED [None]
  - DERMATITIS [None]
